FAERS Safety Report 20040683 (Version 1)
Quarter: 2021Q4

REPORT INFORMATION
  Report Type: Spontaneous
  Country: US (occurrence: None)
  Receive Date: 20211105
  Receipt Date: 20211105
  Transmission Date: 20220303
  Serious: Yes (Death)
  Sender: FDA-Public Use
  Company Number: None

PATIENT
  Age: 68 Year
  Sex: Female

DRUGS (27)
  1. MYCOPHENOLATE MOFETIL\MYCOPHENOLATE MOFETIL HYDROCHLORIDE [Suspect]
     Active Substance: MYCOPHENOLATE MOFETIL\MYCOPHENOLATE MOFETIL HYDROCHLORIDE
     Indication: Immunosuppressant drug therapy
     Dosage: FREQUENCY : TWICE A DAY;?
     Route: 048
     Dates: start: 20210111, end: 202111
  2. TACROLIMUS [Suspect]
     Active Substance: TACROLIMUS
     Indication: Immunosuppressant drug therapy
     Dosage: FREQUENCY : TWICE A DAY;?
     Route: 048
     Dates: start: 20190618, end: 202111
  3. ABELCET [Concomitant]
     Active Substance: AMPHOTERICIN B\DIMYRISTOYLPHOSPHATIDYLCHOLINE, DL-\DIMYRISTOYLPHOSPHATIDYLGLYCEROL, DL-
  4. AZITHROMYCIN [Concomitant]
     Active Substance: AZITHROMYCIN
  5. CARVEDILOL [Concomitant]
     Active Substance: CARVEDILOL
  6. FAMOTIDINE [Concomitant]
     Active Substance: FAMOTIDINE
  7. ITRACONAZOLE [Concomitant]
     Active Substance: ITRACONAZOLE
  8. LORAZEPAM [Concomitant]
     Active Substance: LORAZEPAM
  9. METHIMAZOLE [Concomitant]
     Active Substance: METHIMAZOLE
  10. METOPROLOL TARTRATE [Concomitant]
     Active Substance: METOPROLOL TARTRATE
  11. PREDNISONE [Concomitant]
     Active Substance: PREDNISONE
  12. VALGANCICLOVIR [Concomitant]
  13. TRAMADOL [Concomitant]
     Active Substance: TRAMADOL
  14. OMEPRAZOLE [Concomitant]
     Active Substance: OMEPRAZOLE
  15. ROSUVASTATIN [Concomitant]
     Active Substance: ROSUVASTATIN
  16. FAMOTIDINE [Concomitant]
     Active Substance: FAMOTIDINE
  17. BACTRIM [Concomitant]
     Active Substance: SULFAMETHOXAZOLE\TRIMETHOPRIM
  18. GABAPENTIN [Concomitant]
     Active Substance: GABAPENTIN
  19. TORSEMIDE [Concomitant]
     Active Substance: TORSEMIDE
  20. ALBUTEROL SULFATE [Concomitant]
     Active Substance: ALBUTEROL SULFATE
  21. ASPIRIN [Concomitant]
     Active Substance: ASPIRIN
  22. BIOTIN [Concomitant]
     Active Substance: BIOTIN
  23. ITRACONAZOLE [Concomitant]
     Active Substance: ITRACONAZOLE
  24. INSULIN HUMAN [Concomitant]
     Active Substance: INSULIN HUMAN
  25. NOVOLOG [Concomitant]
     Active Substance: INSULIN ASPART
  26. NYSTATIN [Concomitant]
     Active Substance: NYSTATIN
  27. SENNA [Concomitant]
     Active Substance: SENNA LEAF\SENNOSIDES\SENNOSIDES A AND B

REACTIONS (1)
  - Death [None]

NARRATIVE: CASE EVENT DATE: 20211101
